FAERS Safety Report 8421442-3 (Version None)
Quarter: 2012Q2

REPORT INFORMATION
  Report Type: 
  Country: None (occurrence: None)
  Receive Date: 20120608
  Receipt Date: 20120605
  Transmission Date: 20120825
  Serious: Yes (Hospitalization, Other)
  Sender: FDA-Public Use
  Company Number: PHHY2012BR039009

PATIENT
  Sex: Male

DRUGS (2)
  1. FORMOTEROL FUMARATE [Suspect]
     Indication: EMPHYSEMA
     Dosage: 1 DF, QD
  2. OMEPRAZOLE [Concomitant]
     Indication: GASTROOESOPHAGEAL REFLUX DISEASE
     Dosage: 40 MG, (1 TABLET IN THE MORNING AND 1 TABLET IN THE AFTERNOON)

REACTIONS (4)
  - GASTROOESOPHAGEAL REFLUX DISEASE [None]
  - COUGH [None]
  - OXYGEN SATURATION DECREASED [None]
  - SYNCOPE [None]
